FAERS Safety Report 6232532-8 (Version None)
Quarter: 2009Q2

REPORT INFORMATION
  Report Type: 
  Country: None (occurrence: None)
  Receive Date: 20090617
  Receipt Date: 20090603
  Transmission Date: 20091009
  Serious: Yes (Death, Other)
  Sender: FDA-Public Use
  Company Number: US-RANBAXY-2009RR-24809

PATIENT
  Age: 3 Year
  Sex: Male

DRUGS (6)
  1. ASPIRIN [Suspect]
  2. ACETAMINOPHEN [Suspect]
  3. AMOXICILLIN/POTASSIUM CLAVULANATE [Concomitant]
  4. PROMETHAZINE [Concomitant]
  5. DIPHENHYDRAMINE HCL [Concomitant]
     Route: 042
  6. LORAZEPAM [Concomitant]
     Route: 042

REACTIONS (1)
  - REYE'S SYNDROME [None]
